FAERS Safety Report 5933980-3 (Version None)
Quarter: 2008Q4

REPORT INFORMATION
  Report Type: 
  Country: None (occurrence: None)
  Receive Date: 20081028
  Receipt Date: 20081028
  Transmission Date: 20090506
  Serious: Yes (Other)
  Sender: FDA-Public Use
  Company Number: None

PATIENT
  Age: 52 Year
  Sex: Female
  Weight: 67.1324 kg

DRUGS (1)
  1. LEVAQUIN [Suspect]
     Indication: SINUSITIS
     Dosage: 750 MG 1 X DAY PO
     Route: 048
     Dates: start: 20081010, end: 20081026

REACTIONS (4)
  - ARTHRALGIA [None]
  - JOINT CREPITATION [None]
  - PAIN [None]
  - PERIARTHRITIS [None]
